FAERS Safety Report 8592424-6 (Version None)
Quarter: 2012Q3

REPORT INFORMATION
  Report Type: 
  Country: None (occurrence: None)
  Receive Date: 20120814
  Receipt Date: 20120809
  Transmission Date: 20120928
  Serious: Yes (Disabling, Other)
  Sender: FDA-Public Use
  Company Number: DE-ABBOTT-12P-062-0967449-00

PATIENT
  Sex: Male

DRUGS (2)
  1. DICLOFENAC [Concomitant]
     Indication: PRODUCT USED FOR UNKNOWN INDICATION
  2. HUMIRA [Suspect]
     Indication: ANKYLOSING SPONDYLITIS
     Route: 058
     Dates: start: 20110501

REACTIONS (3)
  - WEIGHT INCREASED [None]
  - HYPERCHOLESTEROLAEMIA [None]
  - DIABETES MELLITUS [None]
